FAERS Safety Report 16000092 (Version 1)
Quarter: 2019Q1

REPORT INFORMATION
  Report Type: Spontaneous
  Country: BR (occurrence: BR)
  Receive Date: 20190225
  Receipt Date: 20190225
  Transmission Date: 20190418
  Serious: Yes (Other)
  Sender: FDA-Public Use
  Company Number: BR-BAYER-2018-077339

PATIENT
  Age: 36 Year
  Sex: Female
  Weight: 78 kg

DRUGS (4)
  1. MIRENA [Suspect]
     Active Substance: LEVONORGESTREL
     Indication: CONTRACEPTION
     Dosage: 20 MCG/24HR, CONT
     Route: 015
     Dates: start: 20110316, end: 2016
  2. MIRENA [Suspect]
     Active Substance: LEVONORGESTREL
     Indication: CONTRACEPTION
     Dosage: 20 MCG/24HR, CONT
     Route: 015
     Dates: start: 20160706, end: 20180403
  3. MIRENA [Suspect]
     Active Substance: LEVONORGESTREL
     Indication: CONTRACEPTION
     Dosage: UNK
  4. EUTHYROX [Concomitant]
     Active Substance: LEVOTHYROXINE SODIUM
     Indication: HYPOTHYROIDISM

REACTIONS (12)
  - Pregnancy with contraceptive device [Not Recovered/Not Resolved]
  - Device dislocation [Recovered/Resolved]
  - Haemorrhage in pregnancy [Recovered/Resolved]
  - Metrorrhagia [None]
  - Drug ineffective [None]
  - Nausea [Not Recovered/Not Resolved]
  - Abdominal pain lower [Not Recovered/Not Resolved]
  - Hypoprogesteronism [Not Recovered/Not Resolved]
  - Twin pregnancy [Not Recovered/Not Resolved]
  - Subchorionic haematoma [None]
  - Dizziness [Not Recovered/Not Resolved]
  - Foetal malpresentation [None]

NARRATIVE: CASE EVENT DATE: 201803
